FAERS Safety Report 4470301-X (Version None)
Quarter: 2004Q4

REPORT INFORMATION
  Report Type: 
  Country: None (occurrence: None)
  Receive Date: 20041008
  Receipt Date: 20041005
  Transmission Date: 20050328
  Serious: Yes (Disabling)
  Sender: FDA-Public Use
  Company Number: US-MERCK-0410USA00748

PATIENT
  Age: 47 Year
  Sex: Male

DRUGS (4)
  1. CLONAZEPAM [Concomitant]
     Route: 065
  2. NEURONTIN [Concomitant]
     Route: 065
  3. VIOXX [Suspect]
     Indication: INFLAMMATION
     Route: 048
     Dates: start: 20020101, end: 20040101
  4. ZOCOR [Concomitant]
     Route: 048

REACTIONS (3)
  - CHEST PAIN [None]
  - FATIGUE [None]
  - SENSATION OF HEAVINESS [None]
